FAERS Safety Report 5312827-2 (Version None)
Quarter: 2007Q1

REPORT INFORMATION
  Report Type: 
  Country: None (occurrence: None)
  Receive Date: 20070201
  Receipt Date: 20061108
  Transmission Date: 20070707
  Serious: Yes (Hospitalization)
  Sender: FDA-Public Use
  Company Number: 256384

PATIENT
  Age: 90 Year
  Sex: Female
  Weight: 46.7 kg

DRUGS (9)
  1. LEVEMIR [Suspect]
     Indication: DIABETES MELLITUS INADEQUATE CONTROL
     Dosage: 15 IU, SUBCUTANEOUS
     Route: 058
     Dates: start: 20060816, end: 20060816
  2. CARDIZEM/00489701/(DILTIAZEM) [Concomitant]
  3. TENORMIN [Concomitant]
  4. ACCUPRIL [Concomitant]
  5. ATIVAN [Concomitant]
  6. POTASSIUM CHLORIDE [Concomitant]
  7. LANOXIN [Concomitant]
  8. LASIX [Concomitant]
  9. GLYBURIDE [Concomitant]

REACTIONS (1)
  - BLOOD GLUCOSE DECREASED [None]
